FAERS Safety Report 15425909 (Version 8)
Quarter: 2019Q1

REPORT INFORMATION
  Report Type: Report from Study
  Country: PT (occurrence: PT)
  Receive Date: 20180925
  Receipt Date: 20190131
  Transmission Date: 20190417
  Serious: Yes (Life-Threatening, Other)
  Sender: FDA-Public Use
  Company Number: PT-ELI_LILLY_AND_COMPANY-PT201809009746

PATIENT
  Age: 35 Year
  Sex: Male

DRUGS (51)
  1. OLANZAPINE. [Suspect]
     Active Substance: OLANZAPINE
     Indication: HIV INFECTION
     Dosage: UNK UNK, UNKNOWN
     Route: 048
  2. OLANZAPINE. [Suspect]
     Active Substance: OLANZAPINE
     Indication: HEPATITIS C
  3. METHADONE [Suspect]
     Active Substance: METHADONE HYDROCHLORIDE
     Indication: HIV INFECTION
     Dosage: UNK UNK, UNKNOWN
     Route: 048
  4. ZIDOVUDINE. [Suspect]
     Active Substance: ZIDOVUDINE
     Indication: HIV INFECTION CDC CATEGORY C
  5. TIAPRIDE [Suspect]
     Active Substance: TIAPRIDE
     Indication: ANTIRETROVIRAL THERAPY
  6. VENLAFAXINE [Suspect]
     Active Substance: VENLAFAXINE HYDROCHLORIDE
     Indication: HIV INFECTION
     Dosage: UNK UNK, UNKNOWN
     Route: 048
  7. VENLAFAXINE [Suspect]
     Active Substance: VENLAFAXINE HYDROCHLORIDE
     Indication: HEPATITIS C
     Dosage: UNK UNK, UNKNOWN
     Route: 048
  8. MIRTAZAPINE. [Suspect]
     Active Substance: MIRTAZAPINE
     Indication: HEPATITIS C
     Dosage: UNK UNK, UNKNOWN
     Route: 048
  9. EMTRICITABINE + TENOFOVIR DISOPROXIL FUMARATE [Suspect]
     Active Substance: EMTRICITABINE\TENOFOVIR DISOPROXIL FUMARATE
     Indication: HIV INFECTION
     Dosage: UNK UNK, UNKNOWN
     Route: 065
  10. SERTRALINE [Suspect]
     Active Substance: SERTRALINE HYDROCHLORIDE
     Indication: ANTIRETROVIRAL THERAPY
  11. PRACET [Suspect]
     Active Substance: VENLAFAXINE HYDROCHLORIDE
     Indication: HEPATITIS C
  12. METHADONE [Suspect]
     Active Substance: METHADONE HYDROCHLORIDE
     Indication: HEPATITIS C
     Dosage: UNK UNK, UNKNOWN
     Route: 048
  13. TRAZODONE [Suspect]
     Active Substance: TRAZODONE HYDROCHLORIDE
     Indication: HEPATITIS C
     Dosage: UNK UNK, UNKNOWN
     Route: 048
  14. MIRTAZAPINE. [Suspect]
     Active Substance: MIRTAZAPINE
     Indication: CHRONIC HEPATITIS C
     Dosage: UNK UNK, UNKNOWN
     Route: 048
  15. SERTRALINE [Suspect]
     Active Substance: SERTRALINE HYDROCHLORIDE
     Indication: HEPATITIS C
     Dosage: UNK UNK, UNKNOWN
     Route: 048
  16. LAMIVUDINE. [Suspect]
     Active Substance: LAMIVUDINE
     Indication: HIV INFECTION
     Dosage: UNK UNK, UNKNOWN
     Route: 048
  17. LAMIVUDINE. [Suspect]
     Active Substance: LAMIVUDINE
     Indication: HEPATITIS C
     Dosage: UNK UNK, UNKNOWN
     Route: 048
  18. LAMIVUDINE. [Suspect]
     Active Substance: LAMIVUDINE
     Indication: HIV INFECTION CDC CATEGORY C
  19. ALCOHOL. [Suspect]
     Active Substance: ALCOHOL
     Indication: PRODUCT USED FOR UNKNOWN INDICATION
     Dosage: UNK UNK, UNKNOWN
     Route: 065
  20. PRACET [Suspect]
     Active Substance: VENLAFAXINE HYDROCHLORIDE
     Indication: OFF LABEL USE
     Dosage: UNK, UNKNOWN
     Route: 065
  21. TENOFOVIR [Suspect]
     Active Substance: TENOFOVIR
     Indication: HIV INFECTION CDC CATEGORY C
     Dosage: UNK UNK, UNKNOWN
     Route: 048
  22. QUETIAPINE. [Suspect]
     Active Substance: QUETIAPINE
     Indication: HIV INFECTION
     Dosage: UNK UNK, UNKNOWN
     Route: 048
  23. ZIDOVUDINE. [Suspect]
     Active Substance: ZIDOVUDINE
     Indication: HEPATITIS C
     Dosage: UNK UNK, UNKNOWN
     Route: 048
  24. ZIDOVUDINE. [Suspect]
     Active Substance: ZIDOVUDINE
     Indication: HIV INFECTION
     Dosage: UNK UNK, UNKNOWN
     Route: 048
  25. SERTRALINE [Suspect]
     Active Substance: SERTRALINE HYDROCHLORIDE
     Indication: HIV INFECTION
     Dosage: UNK UNK, UNKNOWN
     Route: 048
  26. LAMIVUDINE. [Suspect]
     Active Substance: LAMIVUDINE
     Indication: CHRONIC HEPATITIS C
     Dosage: UNK UNK, UNKNOWN
     Route: 048
  27. QUETIAPINE. [Suspect]
     Active Substance: QUETIAPINE
     Indication: CHRONIC HEPATITIS C
     Dosage: UNK UNK, UNKNOWN
     Route: 048
  28. EMTRICITABINE + TENOFOVIR DISOPROXIL FUMARATE [Suspect]
     Active Substance: EMTRICITABINE\TENOFOVIR DISOPROXIL FUMARATE
     Indication: HEPATITIS C
     Dosage: UNK UNK, UNKNOWN
     Route: 065
  29. LOPINAVIR + RITONAVIR [Suspect]
     Active Substance: LOPINAVIR\RITONAVIR
     Indication: CHRONIC HEPATITIS C
     Dosage: UNK UNK, UNKNOWN
     Route: 048
  30. PRACET [Suspect]
     Active Substance: VENLAFAXINE HYDROCHLORIDE
     Indication: CHRONIC HEPATITIS C
  31. OLANZAPINE. [Suspect]
     Active Substance: OLANZAPINE
     Indication: CHRONIC HEPATITIS C
  32. ZIDOVUDINE. [Suspect]
     Active Substance: ZIDOVUDINE
     Indication: CHRONIC HEPATITIS C
     Dosage: UNK UNK, UNKNOWN
     Route: 048
  33. TRAZODONE [Suspect]
     Active Substance: TRAZODONE HYDROCHLORIDE
     Indication: CHRONIC HEPATITIS C
     Dosage: UNK UNK, UNKNOWN
     Route: 048
  34. PRACET [Suspect]
     Active Substance: VENLAFAXINE HYDROCHLORIDE
     Indication: HIV INFECTION
  35. QUETIAPINE. [Suspect]
     Active Substance: QUETIAPINE
     Indication: HEPATITIS C
     Dosage: UNK UNK, UNKNOWN
     Route: 048
  36. ZIDOVUDINE. [Suspect]
     Active Substance: ZIDOVUDINE
     Indication: ANTIRETROVIRAL THERAPY
  37. TIAPRIDE [Suspect]
     Active Substance: TIAPRIDE
     Indication: HIV INFECTION
     Dosage: UNK UNK, UNKNOWN
     Route: 048
  38. TRAZODONE [Suspect]
     Active Substance: TRAZODONE HYDROCHLORIDE
     Indication: HIV INFECTION
     Dosage: UNK UNK, UNKNOWN
     Route: 048
  39. LOPINAVIR + RITONAVIR [Suspect]
     Active Substance: LOPINAVIR\RITONAVIR
     Indication: ANTIRETROVIRAL THERAPY
  40. TIAPRIDE [Suspect]
     Active Substance: TIAPRIDE
     Indication: CHRONIC HEPATITIS C
     Dosage: UNK UNK, UNKNOWN
     Route: 048
  41. EMTRICITABINE + TENOFOVIR DISOPROXIL FUMARATE [Suspect]
     Active Substance: EMTRICITABINE\TENOFOVIR DISOPROXIL FUMARATE
     Indication: CHRONIC HEPATITIS C
     Dosage: UNK UNK, UNKNOWN
     Route: 065
  42. EMTRICITABINE + TENOFOVIR DISOPROXIL FUMARATE [Suspect]
     Active Substance: EMTRICITABINE\TENOFOVIR DISOPROXIL FUMARATE
     Indication: ANTIRETROVIRAL THERAPY
  43. LAMIVUDINE. [Suspect]
     Active Substance: LAMIVUDINE
     Indication: ANTIRETROVIRAL THERAPY
  44. LOPINAVIR + RITONAVIR [Suspect]
     Active Substance: LOPINAVIR\RITONAVIR
     Indication: HIV INFECTION
     Dosage: UNK UNK, UNKNOWN
     Route: 046
  45. LOPINAVIR + RITONAVIR [Suspect]
     Active Substance: LOPINAVIR\RITONAVIR
     Indication: HIV INFECTION CDC CATEGORY C
  46. METHADONE [Suspect]
     Active Substance: METHADONE HYDROCHLORIDE
     Indication: CHRONIC HEPATITIS C
     Dosage: UNK UNK, UNKNOWN
     Route: 048
  47. TIAPRIDE [Suspect]
     Active Substance: TIAPRIDE
     Indication: HEPATITIS C
     Dosage: UNK UNK, UNKNOWN
     Route: 048
  48. VENLAFAXINE [Suspect]
     Active Substance: VENLAFAXINE HYDROCHLORIDE
     Indication: CHRONIC HEPATITIS C
     Dosage: UNK UNK, UNKNOWN
     Route: 048
  49. MIRTAZAPINE. [Suspect]
     Active Substance: MIRTAZAPINE
     Indication: HIV INFECTION
     Dosage: UNK UNK, UNKNOWN
     Route: 048
  50. SERTRALINE [Suspect]
     Active Substance: SERTRALINE HYDROCHLORIDE
     Indication: CHRONIC HEPATITIS C
     Dosage: UNK UNK, UNKNOWN
     Route: 048
  51. LOPINAVIR + RITONAVIR [Suspect]
     Active Substance: LOPINAVIR\RITONAVIR
     Indication: HEPATITIS C
     Dosage: UNK UNK, UNKNOWN
     Route: 048

REACTIONS (3)
  - Hepatic fibrosis [Unknown]
  - Drug-induced liver injury [Recovered/Resolved]
  - Off label use [Recovered/Resolved]
